FAERS Safety Report 4556809-7 (Version None)
Quarter: 2005Q1

REPORT INFORMATION
  Report Type: 
  Country: None (occurrence: None)
  Receive Date: 20050120
  Receipt Date: 20050107
  Transmission Date: 20050727
  Serious: Yes (Other)
  Sender: FDA-Public Use
  Company Number: US-GLAXOSMITHKLINE-A0539791A

PATIENT
  Age: 37 Year
  Sex: Female

DRUGS (10)
  1. CITRUCEL SUGAR-FREE SUSPENSION ORANGE [Suspect]
     Indication: GASTROINTESTINAL DISORDER
     Dosage: 1TBS AS REQUIRED
     Dates: start: 20040101
  2. DIAMOX [Concomitant]
     Indication: EPILEPSY
  3. PHENOBARBITAL [Concomitant]
     Indication: EPILEPSY
  4. LAMICTAL [Concomitant]
     Indication: EPILEPSY
  5. DIASTAT [Concomitant]
     Indication: EPILEPSY
  6. MILK OF MAGNESIA [Concomitant]
  7. FOLIC ACID [Concomitant]
  8. VITAMIN B-12 [Concomitant]
  9. CANTOR [Concomitant]
  10. VALPROIC ACID [Concomitant]
     Indication: EPILEPSY
     Dates: end: 20040101

REACTIONS (1)
  - EPILEPSY [None]
